FAERS Safety Report 5643892-0 (Version None)
Quarter: 2008Q1

REPORT INFORMATION
  Report Type: 
  Country: None (occurrence: None)
  Receive Date: 20080226
  Receipt Date: 20080211
  Transmission Date: 20080703
  Serious: Yes (Death)
  Sender: FDA-Public Use
  Company Number: TRP_01020_2008

PATIENT
  Sex: Female
  Weight: 63.5036 kg

DRUGS (7)
  1. RIBAVIRIN [Suspect]
     Indication: HEPATITIS C
     Dosage: (1 DF BID  [400 MG/600 MG] ORAL)
     Route: 048
     Dates: start: 20070911
  2. PEGASYS [Suspect]
     Indication: HEPATITIS C
     Dosage: (180 UG 1X/WEEK SUBCUTANEOUS)
     Route: 058
     Dates: start: 20070911
  3. LEXAPRO [Concomitant]
  4. BUSPAR [Concomitant]
  5. PRILOSEC [Concomitant]
  6. RISPERDAL [Concomitant]
  7. REMERON [Concomitant]

REACTIONS (5)
  - ANXIETY [None]
  - BLOOD ALBUMIN DECREASED [None]
  - FATIGUE [None]
  - PAIN [None]
  - TREATMENT NONCOMPLIANCE [None]
